FAERS Safety Report 9188285 (Version 3)
Quarter: 2013Q2

REPORT INFORMATION
  Report Type: Spontaneous
  Country: US (occurrence: US)
  Receive Date: 20130325
  Receipt Date: 20130424
  Transmission Date: 20140414
  Serious: Yes (Death, Hospitalization)
  Sender: FDA-Public Use
  Company Number: US-GILEAD-2013-0072242

PATIENT
  Age: 59 Year
  Sex: Female

DRUGS (1)
  1. LETAIRIS [Suspect]
     Indication: PULMONARY HYPERTENSION
     Dosage: 10 MG, QD
     Route: 048
     Dates: start: 20081014

REACTIONS (5)
  - Right ventricular failure [Fatal]
  - Pulmonary embolism [Fatal]
  - Brain abscess [Unknown]
  - Mental status changes [Not Recovered/Not Resolved]
  - Meningitis [Unknown]
